FAERS Safety Report 9688186 (Version 1)
Quarter: 2013Q4

REPORT INFORMATION
  Report Type: Spontaneous
  Country: US (occurrence: None)
  Receive Date: 20131113
  Receipt Date: 20131113
  Transmission Date: 20140711
  Serious: No
  Sender: FDA-Public Use
  Company Number: None

PATIENT
  Age: 54 None
  Sex: Female

DRUGS (3)
  1. MINOCYCLINE [Suspect]
     Dates: start: 20120316, end: 20120406
  2. LISINOPRIL [Concomitant]
  3. ESTRADIOL [Concomitant]

REACTIONS (3)
  - Drug-induced liver injury [None]
  - Jaundice [None]
  - Hepatic cirrhosis [None]
